FAERS Safety Report 12913880 (Version 1)
Quarter: 2016Q4

REPORT INFORMATION
  Report Type: Spontaneous
  Country: US (occurrence: US)
  Receive Date: 20161105
  Receipt Date: 20161105
  Transmission Date: 20170207
  Serious: Yes (Other)
  Sender: FDA-Public Use
  Company Number: US-TEVA-709935ACC

PATIENT
  Age: 25 Year
  Sex: Female
  Weight: 95.79 kg

DRUGS (1)
  1. PARAGARD T 380A [Suspect]
     Active Substance: COPPER
     Indication: CONTRACEPTION
     Dates: start: 20151124, end: 20161027

REACTIONS (2)
  - Device dislocation [Recovered/Resolved]
  - Pelvic pain [Unknown]

NARRATIVE: CASE EVENT DATE: 20161012
